FAERS Safety Report 12188089 (Version 1)
Quarter: 2016Q1

REPORT INFORMATION
  Report Type: Report from Study
  Country: US (occurrence: US)
  Receive Date: 20160317
  Receipt Date: 20160317
  Transmission Date: 20160526
  Serious: Yes (Hospitalization, Other)
  Sender: FDA-Public Use
  Company Number: US-BAXTER-2016BAX011592

PATIENT
  Age: 54 Year
  Sex: Male
  Weight: 114.14 kg

DRUGS (5)
  1. VELCADE [Suspect]
     Active Substance: BORTEZOMIB
     Indication: PLASMA CELL MYELOMA
     Dosage: DAYS 1, 4, 8 AND 11
     Route: 058
     Dates: start: 20151123, end: 20160104
  2. CYTOXAN [Suspect]
     Active Substance: CYCLOPHOSPHAMIDE
     Indication: PLASMA CELL MYELOMA
     Route: 042
     Dates: start: 20160106, end: 20160217
  3. KYPROLIS [Suspect]
     Active Substance: CARFILZOMIB
     Indication: PLASMA CELL MYELOMA
     Dosage: ON DAY 1,  2, 8, 9, 15, 16
     Route: 042
     Dates: start: 20160106, end: 20160217
  4. DECADRON [Suspect]
     Active Substance: DEXAMETHASONE
     Indication: PLASMA CELL MYELOMA
     Route: 048
     Dates: start: 20151123, end: 20160104
  5. ELOTUZUMAB [Suspect]
     Active Substance: ELOTUZUMAB
     Indication: PLASMA CELL MYELOMA
     Route: 042
     Dates: start: 20160217, end: 20160217

REACTIONS (4)
  - Unresponsive to stimuli [Unknown]
  - Acute kidney injury [Recovered/Resolved]
  - Respiratory distress [Unknown]
  - Anaemia [Unknown]

NARRATIVE: CASE EVENT DATE: 20160106
